FAERS Safety Report 8172452-5 (Version None)
Quarter: 2012Q1

REPORT INFORMATION
  Report Type: 
  Country: None (occurrence: None)
  Receive Date: 20120227
  Receipt Date: 20120227
  Transmission Date: 20120608
  Serious: Yes (Death, Hospitalization)
  Sender: FDA-Public Use
  Company Number: None

PATIENT
  Sex: Female
  Weight: 68 kg

DRUGS (2)
  1. TAXOL [Suspect]
     Dosage: 414 MG
     Dates: end: 20120112
  2. CARBOPLATIN [Suspect]
     Dosage: 522 MG
     Dates: end: 20111229

REACTIONS (11)
  - ASTHENIA [None]
  - MALAISE [None]
  - PYREXIA [None]
  - HYPOTENSION [None]
  - CULTURE STOOL POSITIVE [None]
  - ABDOMINAL ABSCESS [None]
  - ENTEROBACTER INFECTION [None]
  - ATRIAL FIBRILLATION [None]
  - PANCYTOPENIA [None]
  - CLOSTRIDIAL INFECTION [None]
  - WOUND INFECTION STAPHYLOCOCCAL [None]
